FAERS Safety Report 5755303-5 (Version None)
Quarter: 2008Q2

REPORT INFORMATION
  Report Type: 
  Country: None (occurrence: None)
  Receive Date: 20080528
  Receipt Date: 20080414
  Transmission Date: 20081010
  Serious: Yes (Congenital Anomaly)
  Sender: FDA-Public Use
  Company Number: B0521508A

PATIENT
  Sex: 0

DRUGS (1)
  1. ORLISTAT (FORMULATION UNKNOWN) (ORLISTAT) [Suspect]
     Dosage: TRANSPLACENTARY
     Route: 064

REACTIONS (2)
  - MATERNAL DRUGS AFFECTING FOETUS [None]
  - TRANSPOSITION OF THE GREAT VESSELS [None]
